FAERS Safety Report 8167482-3 (Version None)
Quarter: 2012Q1

REPORT INFORMATION
  Report Type: 
  Country: None (occurrence: None)
  Receive Date: 20120221
  Receipt Date: 20120206
  Transmission Date: 20120608
  Serious: Yes (Other)
  Sender: FDA-Public Use
  Company Number: 216730

PATIENT
  Age: 17 Year

DRUGS (1)
  1. INNOHEP [Suspect]
     Indication: EMBOLISM
     Dosage: 0.5 ML (0.5 ML,1 IN 1 D)

REACTIONS (2)
  - PULMONARY EMBOLISM [None]
  - DISEASE RECURRENCE [None]
